FAERS Safety Report 17376599 (Version 2)
Quarter: 2021Q1

REPORT INFORMATION
  Report Type: Report from Study
  Country: CO (occurrence: CO)
  Receive Date: 20200206
  Receipt Date: 20210107
  Transmission Date: 20210419
  Serious: Yes (Other)
  Sender: FDA-Public Use
  Company Number: CO-JNJFOC-20180637548

PATIENT
  Age: 62 Year
  Sex: Female
  Weight: 65 kg

DRUGS (5)
  1. STELARA [Suspect]
     Active Substance: USTEKINUMAB
     Indication: PSORIASIS
     Route: 058
     Dates: start: 20151026, end: 20190528
  2. STELARA [Suspect]
     Active Substance: USTEKINUMAB
     Indication: RHEUMATOID ARTHRITIS
     Route: 058
     Dates: start: 20191026
  3. HIDROCORTISONA [HYDROCORTISONE] [Concomitant]
     Active Substance: HYDROCORTISONE
  4. DEXAMETASONA [DEXAMETHASONE] [Concomitant]
     Active Substance: DEXAMETHASONE
  5. BETAMETASONA [BETAMETHASONE SODIUM PHOSPHATE] [Concomitant]

REACTIONS (10)
  - Diabetes mellitus [Recovered/Resolved]
  - Retinal detachment [Recovering/Resolving]
  - Headache [Recovered/Resolved]
  - Spinal pain [Unknown]
  - Psoriatic arthropathy [Unknown]
  - Inflammation [Recovered/Resolved]
  - Solar lentigo [Recovering/Resolving]
  - Malaise [Recovered/Resolved]
  - Cold sweat [Recovered/Resolved]
  - Lymphadenopathy [Recovered/Resolved]

NARRATIVE: CASE EVENT DATE: 2017
